FAERS Safety Report 24592557 (Version 1)
Quarter: 2024Q4

REPORT INFORMATION
  Report Type: Spontaneous
  Country: FR (occurrence: FR)
  Receive Date: 20241108
  Receipt Date: 20241108
  Transmission Date: 20250114
  Serious: Yes (Other)
  Sender: CHEPLAPHARM
  Company Number: None

PATIENT
  Age: 36 Year
  Sex: Male

DRUGS (7)
  1. QUETIAPINE [Suspect]
     Active Substance: QUETIAPINE
     Dosage: 10 TABLETS
     Route: 048
     Dates: start: 20241013, end: 20241013
  2. OLANZAPINE [Suspect]
     Active Substance: OLANZAPINE
     Indication: Bipolar disorder
  3. COCAINE [Suspect]
     Active Substance: COCAINE
     Dosage: 2G OF CRACK COCAINE
     Route: 055
     Dates: start: 20241013, end: 20241013
  4. VALIUM [Suspect]
     Active Substance: DIAZEPAM
     Dosage: 2 BLISTER PACKS
     Route: 048
     Dates: start: 20241013, end: 20241013
  5. ALCOHOL [Suspect]
     Active Substance: ALCOHOL
     Route: 048
     Dates: start: 20241013, end: 20241013
  6. DEPAKOTE [Concomitant]
     Active Substance: DIVALPROEX SODIUM
     Indication: Bipolar disorder
  7. Transxene [Concomitant]
     Indication: Bipolar disorder

REACTIONS (7)
  - Drug abuse [Not Recovered/Not Resolved]
  - Suicidal ideation [Unknown]
  - Toxicity to various agents [Recovered/Resolved]
  - Somnolence [Recovered/Resolved]
  - Tachycardia [Recovered/Resolved]
  - Alcohol poisoning [Recovered/Resolved]
  - Blood creatine phosphokinase increased [Recovering/Resolving]

NARRATIVE: CASE EVENT DATE: 20241013
